FAERS Safety Report 7600165-4 (Version None)
Quarter: 2011Q3

REPORT INFORMATION
  Report Type: 
  Country: None (occurrence: None)
  Receive Date: 20110711
  Receipt Date: 20110629
  Transmission Date: 20111222
  Serious: Yes (Other)
  Sender: FDA-Public Use
  Company Number: PHHY2011VE58534

PATIENT
  Sex: Female

DRUGS (4)
  1. CALCORT [Concomitant]
     Dosage: 6 MG DAILY
  2. DAFLON 500 [Concomitant]
     Dosage: DIOSMIN (90%) 450MG, HESPERIDIN 50MG ONCE A DAY SINCE UNKNOWN DATE
  3. ZOLEDRONIC ACID [Suspect]
     Indication: OSTEOPOROSIS
     Dosage: 5 MG/100 ML DAILY
     Route: 042
     Dates: start: 20100201
  4. LERCADIP [Concomitant]
     Dosage: 20 MG DAILY

REACTIONS (4)
  - FIBULA FRACTURE [None]
  - SEPSIS [None]
  - LEG AMPUTATION [None]
  - TIBIA FRACTURE [None]
